FAERS Safety Report 5950307-1 (Version None)
Quarter: 2008Q4

REPORT INFORMATION
  Report Type: 
  Country: None (occurrence: None)
  Receive Date: 20081112
  Receipt Date: 20081105
  Transmission Date: 20090506
  Serious: Yes (Other)
  Sender: FDA-Public Use
  Company Number: US-BAYER-200828484NA

PATIENT
  Sex: Female

DRUGS (1)
  1. NEXAVAR [Suspect]
     Indication: HEPATIC NEOPLASM MALIGNANT
     Route: 048
     Dates: start: 20080501

REACTIONS (6)
  - ALOPECIA [None]
  - FATIGUE [None]
  - PAIN OF SKIN [None]
  - SKIN CANCER [None]
  - SKIN LESION [None]
  - WEIGHT DECREASED [None]
